FAERS Safety Report 8989176 (Version 3)
Quarter: 2013Q1

REPORT INFORMATION
  Report Type: Spontaneous
  Country: US (occurrence: US)
  Receive Date: 20121228
  Receipt Date: 20130201
  Transmission Date: 20140127
  Serious: Yes (Other)
  Sender: FDA-Public Use
  Company Number: US-ASTELLAS-2012US012701

PATIENT
  Age: 56 Year
  Sex: Male

DRUGS (3)
  1. AMBISOME [Suspect]
     Indication: CANDIDA INFECTION
     Dosage: 3.3 MG/KG, UID/QD
     Route: 042
  2. AMBISOME [Suspect]
     Dosage: 5.5 MG/KG, UID/QD
     Route: 042
  3. AMBISOME [Suspect]
     Dosage: 3.3 MG/KG, UID/QD
     Route: 042
     Dates: start: 20121219, end: 201301

REACTIONS (10)
  - Incorrect dose administered [Unknown]
  - Metamorphopsia [Unknown]
  - Renal failure [Unknown]
  - Dyspnoea [Unknown]
  - Muscle spasms [Unknown]
  - Lethargy [Unknown]
  - Headache [Unknown]
  - Dysuria [Unknown]
  - Nausea [Unknown]
  - Decreased appetite [Unknown]
